FAERS Safety Report 23258623 (Version 7)
Quarter: 2024Q1

REPORT INFORMATION
  Report Type: Spontaneous
  Country: US (occurrence: US)
  Receive Date: 20231204
  Receipt Date: 20240326
  Transmission Date: 20240410
  Serious: No
  Sender: FDA-Public Use
  Company Number: US-PFIZER INC-PV202300182145

PATIENT
  Age: 79 Year
  Sex: Male
  Weight: 64.853 kg

DRUGS (2)
  1. BOSULIF [Suspect]
     Active Substance: BOSUTINIB MONOHYDRATE
     Indication: Myeloid leukaemia
     Dosage: 100 MG
  2. BOSULIF [Suspect]
     Active Substance: BOSUTINIB MONOHYDRATE
     Dosage: TAKE 3 TABLET BY MOUTH ONCE DAILY. SHOULD BE TAKEN WITH FOOD.
     Route: 048
     Dates: start: 202310

REACTIONS (3)
  - Memory impairment [Recovered/Resolved]
  - Pruritus [Unknown]
  - Peripheral swelling [Unknown]
